FAERS Safety Report 8225401-5 (Version None)
Quarter: 2012Q1

REPORT INFORMATION
  Report Type: 
  Country: None (occurrence: None)
  Receive Date: 20120321
  Receipt Date: 20120309
  Transmission Date: 20120608
  Serious: No
  Sender: FDA-Public Use
  Company Number: US-B.I. PHARMACEUTICALS,INC./RIDGEFIELD-2012-BP-04627BP

PATIENT
  Sex: Female

DRUGS (3)
  1. SPIRIVA [Suspect]
     Indication: DYSPNOEA
     Dosage: 18 MCG
     Route: 055
     Dates: start: 20120201, end: 20120227
  2. THYROID TAB [Concomitant]
     Indication: HYPOTHYROIDISM
     Dosage: 60 MG
     Route: 048
  3. THYROID TAB [Concomitant]
     Dosage: 90 MG
     Route: 048

REACTIONS (2)
  - SINUSITIS [None]
  - CARDIAC FLUTTER [None]
